FAERS Safety Report 17665014 (Version 5)
Quarter: 2021Q1

REPORT INFORMATION
  Report Type: Spontaneous
  Country: US (occurrence: US)
  Receive Date: 20200414
  Receipt Date: 20210107
  Transmission Date: 20210419
  Serious: Yes (Hospitalization)
  Sender: FDA-Public Use
  Company Number: US-PFIZER INC-2020151245

PATIENT
  Age: 85 Year
  Sex: Male

DRUGS (2)
  1. XELJANZ XR [Suspect]
     Active Substance: TOFACITINIB CITRATE
     Dosage: 11 MG
     Dates: start: 20201219
  2. XELJANZ [Suspect]
     Active Substance: TOFACITINIB CITRATE
     Dosage: 5 MG

REACTIONS (6)
  - Viral infection [Unknown]
  - Incorrect product dosage form administered [Unknown]
  - Urinary incontinence [Unknown]
  - Product dispensing error [Unknown]
  - Incorrect dose administered [Unknown]
  - Dyspepsia [Unknown]

NARRATIVE: CASE EVENT DATE: 20201219
